FAERS Safety Report 7535692-1 (Version None)
Quarter: 2011Q2

REPORT INFORMATION
  Report Type: 
  Country: None (occurrence: None)
  Receive Date: 20110602
  Receipt Date: 20110524
  Transmission Date: 20111010
  Serious: Yes (Hospitalization)
  Sender: FDA-Public Use
  Company Number: AXC-2011-000239

PATIENT
  Age: 84 Year
  Sex: Male
  Weight: 47.2 kg

DRUGS (4)
  1. ZENPEP [Suspect]
     Indication: MALABSORPTION
     Dosage: 20000; 60000 USP, QD, ORAL
     Route: 048
     Dates: start: 20110520, end: 20110520
  2. ZENPEP [Suspect]
     Indication: MALABSORPTION
     Dosage: 20000; 60000 USP, QD, ORAL
     Route: 048
     Dates: start: 20110501
  3. ZENPEP [Suspect]
     Indication: MALABSORPTION
     Dosage: 20000; 60000 USP, QD, ORAL
     Route: 048
     Dates: end: 20110519
  4. ROPINIROLE [Concomitant]

REACTIONS (9)
  - ABDOMINAL PAIN LOWER [None]
  - CHILLS [None]
  - ABDOMINAL PAIN [None]
  - COUGH [None]
  - GASTROOESOPHAGEAL REFLUX DISEASE [None]
  - CHEST PAIN [None]
  - WHITE BLOOD CELL COUNT INCREASED [None]
  - MIDDLE INSOMNIA [None]
  - HYPERHIDROSIS [None]
